FAERS Safety Report 21509485 (Version 2)
Quarter: 2023Q4

REPORT INFORMATION
  Report Type: Spontaneous
  Country: US (occurrence: US)
  Receive Date: 20221026
  Receipt Date: 20231016
  Transmission Date: 20240110
  Serious: No
  Sender: FDA-Public Use
  Company Number: US-INCYTE CORPORATION-2022IN010156

PATIENT

DRUGS (2)
  1. JAKAFI [Suspect]
     Active Substance: RUXOLITINIB
     Indication: Polycythaemia
     Dosage: 20 MILLIGRAM, QD
     Route: 048
     Dates: start: 20220506
  2. JAKAFI [Suspect]
     Active Substance: RUXOLITINIB
     Indication: Myelofibrosis
     Dosage: 20 MILLIGRAM, QD
     Route: 048
     Dates: start: 202205

REACTIONS (5)
  - Restless legs syndrome [Unknown]
  - Condition aggravated [Unknown]
  - Myoclonus [Unknown]
  - Muscle spasms [Unknown]
  - Weight increased [Unknown]
